FAERS Safety Report 9026169 (Version 1)
Quarter: 2013Q1

REPORT INFORMATION
  Report Type: Spontaneous
  Country: US (occurrence: None)
  Receive Date: 20130108
  Receipt Date: 20130108
  Transmission Date: 20140127
  Serious: Yes (Life-Threatening, Other)
  Sender: FDA-Public Use
  Company Number: 1546248

PATIENT
  Age: 83 Year
  Sex: Female
  Weight: 80 kg

DRUGS (1)
  1. MORPHINE SULFATE INJ, USP (MORPHINE SULPHATE) [Suspect]
     Indication: ARTHROSCOPY
     Dosage: VIA PCA PUMP
     Dates: start: 20120911

REACTIONS (4)
  - Unresponsive to stimuli [None]
  - Cardio-respiratory arrest [None]
  - Device malfunction [None]
  - Inappropriate schedule of drug administration [None]
